FAERS Safety Report 12156473 (Version 1)
Quarter: 2016Q1

REPORT INFORMATION
  Report Type: Spontaneous
  Country: US (occurrence: US)
  Receive Date: 20160307
  Receipt Date: 20160307
  Transmission Date: 20160526
  Serious: Yes (Other)
  Sender: FDA-Public Use
  Company Number: US-SA-2016SA044292

PATIENT
  Sex: Male

DRUGS (2)
  1. LANTUS SOLOSTAR [Suspect]
     Active Substance: INSULIN GLARGINE
     Dosage: HE TAKES IT ^PRN^, AND CLARIFIED HE MAY TAKE 15 OR 20 UNITS, OR MAY?INJECT 25 OR 30 UNITS
     Route: 065
     Dates: start: 2014
  2. SOLOSTAR [Concomitant]
     Active Substance: DEVICE
     Dates: start: 2014

REACTIONS (4)
  - Transplant [Unknown]
  - Wrong technique in product usage process [Unknown]
  - Blood glucose increased [Unknown]
  - Injection site bruising [Unknown]

NARRATIVE: CASE EVENT DATE: 2014
